FAERS Safety Report 9507389 (Version 2)
Quarter: 2013Q4

REPORT INFORMATION
  Report Type: Spontaneous
  Country: DK (occurrence: CA)
  Receive Date: 20130909
  Receipt Date: 20131002
  Transmission Date: 20140711
  Serious: Yes (Other)
  Sender: FDA-Public Use
  Company Number: CA-FRI-1000048443

PATIENT
  Age: 4 Year
  Sex: Male
  Weight: 20 kg

DRUGS (1)
  1. ESCITALOPRAM [Suspect]
     Dosage: OVERDOSE: ESCITALOPRAM (AROUND 50 MG)
     Route: 048
     Dates: start: 20130808, end: 20130808

REACTIONS (1)
  - Accidental exposure to product by child [Recovered/Resolved]
